FAERS Safety Report 4377391-3 (Version None)
Quarter: 2004Q2

REPORT INFORMATION
  Report Type: 
  Country: None (occurrence: None)
  Receive Date: 20040615
  Receipt Date: 20040427
  Transmission Date: 20050107
  Serious: Yes (Other)
  Sender: FDA-Public Use
  Company Number: US-BRISTOL-MYERS SQUIBB COMPANY-12572533

PATIENT
  Age: 6 Year
  Sex: Female

DRUGS (1)
  1. ABILIFY [Suspect]
     Indication: AFFECTIVE DISORDER
     Route: 048
     Dates: start: 20040304, end: 20040304

REACTIONS (4)
  - ASTHENIA [None]
  - CYANOSIS [None]
  - DYSSTASIA [None]
  - PALLOR [None]
